FAERS Safety Report 15478085 (Version 1)
Quarter: 2018Q4

REPORT INFORMATION
  Report Type: Spontaneous
  Country: US (occurrence: US)
  Receive Date: 20181002
  Receipt Date: 20181002
  Transmission Date: 20190205
  Serious: Yes (Disabling)
  Sender: FDA-Public Use
  Company Number: None

PATIENT
  Age: 76 Year
  Sex: Male
  Weight: 87.3 kg

DRUGS (1)
  1. LANSOPRAZOLE DELAYED-RELEASE 1 CAPSULES 30 MG [Suspect]
     Active Substance: LANSOPRAZOLE
     Indication: GASTROOESOPHAGEAL REFLUX DISEASE
     Dosage: ?          QUANTITY:90 DF DOSAGE FORM;?
     Route: 048

REACTIONS (4)
  - Product dose omission [None]
  - Dyspepsia [None]
  - Product substitution issue [None]
  - Disease recurrence [None]

NARRATIVE: CASE EVENT DATE: 20180930
